FAERS Safety Report 18430514 (Version 2)
Quarter: 2020Q4

REPORT INFORMATION
  Report Type: Spontaneous
  Country: US (occurrence: US)
  Receive Date: 20201027
  Receipt Date: 20201119
  Transmission Date: 20210114
  Serious: No
  Sender: FDA-Public Use
  Company Number: US-GILEAD-2020-0501447

PATIENT
  Age: 58 Year
  Sex: Male
  Weight: 95.06 kg

DRUGS (7)
  1. SOFOSBUVIR;VELPATASVIR [Suspect]
     Active Substance: SOFOSBUVIR\VELPATASVIR
     Indication: CHRONIC HEPATITIS C
     Dosage: 1 DOSAGE FORM, QD
     Route: 048
  2. LISINOPRIL. [Concomitant]
     Active Substance: LISINOPRIL
  3. NAPROXEN. [Concomitant]
     Active Substance: NAPROXEN
  4. IBUPROFEN. [Concomitant]
     Active Substance: IBUPROFEN
  5. VITAMINS NOS [Concomitant]
     Active Substance: VITAMINS
  6. TACROLIMUS. [Concomitant]
     Active Substance: TACROLIMUS
  7. CEPHALEXIN [CEFALEXIN] [Concomitant]
     Active Substance: CEPHALEXIN

REACTIONS (2)
  - Hypersomnia [Unknown]
  - Hernia [Unknown]

NARRATIVE: CASE EVENT DATE: 20201016
